FAERS Safety Report 23594208 (Version 2)
Quarter: 2024Q1

REPORT INFORMATION
  Report Type: Report from Study
  Country: JP (occurrence: JP)
  Receive Date: 20240305
  Receipt Date: 20240314
  Transmission Date: 20240409
  Serious: Yes (Death, Hospitalization)
  Sender: FDA-Public Use
  Company Number: JP-JNJFOC-20240306904

PATIENT

DRUGS (2)
  1. DARATUMUMAB [Suspect]
     Active Substance: DARATUMUMAB
     Indication: Plasma cell myeloma
     Dosage: DOSE UNKNOWN
     Route: 058
  2. VELCADE [Suspect]
     Active Substance: BORTEZOMIB
     Indication: Plasma cell myeloma
     Dosage: DOSE UNKNOWN
     Route: 065

REACTIONS (6)
  - Plasma cell myeloma [Fatal]
  - Cardiac failure [Fatal]
  - Pneumonia bacterial [Fatal]
  - COVID-19 [Fatal]
  - Bacterial sepsis [Fatal]
  - Infusion related reaction [Recovered/Resolved]
